FAERS Safety Report 6173909-9 (Version None)
Quarter: 2009Q2

REPORT INFORMATION
  Report Type: 
  Country: None (occurrence: None)
  Receive Date: 20090430
  Receipt Date: 20090420
  Transmission Date: 20091009
  Serious: Yes (Hospitalization, Other)
  Sender: FDA-Public Use
  Company Number: US-WYE-H09043409

PATIENT
  Sex: Female

DRUGS (4)
  1. DESVENLAFAXINE SUCCINATE MONOHYDRATE [Suspect]
     Indication: MENOPAUSAL SYMPTOMS
     Route: 048
     Dates: start: 20081017, end: 20081023
  2. DESVENLAFAXINE SUCCINATE MONOHYDRATE [Suspect]
     Route: 048
     Dates: start: 20081024
  3. VITAMIN B12 [Concomitant]
     Dosage: UNKNOWN
     Route: 065
     Dates: start: 20080401
  4. ACETYLSALICYLIC ACID [Concomitant]
     Dosage: UNKNOWN
     Route: 065
     Dates: start: 20090101

REACTIONS (2)
  - CHEST PAIN [None]
  - MIGRAINE [None]
